FAERS Safety Report 7438220-4 (Version None)
Quarter: 2011Q2

REPORT INFORMATION
  Report Type: 
  Country: None (occurrence: None)
  Receive Date: 20110421
  Receipt Date: 20110421
  Transmission Date: 20111010
  Serious: Yes (Hospitalization)
  Sender: FDA-Public Use
  Company Number: None

PATIENT

DRUGS (1)
  1. NORDITROPIN FLEXPRO [Suspect]
     Dosage: 0.6MG QD SC
     Route: 058

REACTIONS (2)
  - THROMBOSIS [None]
  - HYSTERECTOMY [None]
